FAERS Safety Report 8908622 (Version 2)
Quarter: 2012Q4

REPORT INFORMATION
  Report Type: 
  Country: CA (occurrence: CA)
  Receive Date: 20121114
  Receipt Date: 20121214
  Transmission Date: 20130627
  Serious: Yes (Death)
  Sender: FDA-Public Use
  Company Number: CA-INCYTE CORPORATION-2012IN002315

PATIENT
  Age: 60 Year
  Sex: Male

DRUGS (3)
  1. JAKAVI [Suspect]
     Indication: MYELOFIBROSIS
     Dosage: UNK UNK, UNK
     Route: 048
     Dates: start: 20120828, end: 20120914
  2. JAKAVI [Suspect]
     Indication: POLYCYTHAEMIA VERA
  3. ASPIRIN [Concomitant]

REACTIONS (2)
  - Cerebrovascular accident [Fatal]
  - Sepsis [Fatal]
